FAERS Safety Report 7316079-3 (Version None)
Quarter: 2011Q1

REPORT INFORMATION
  Report Type: 
  Country: None (occurrence: None)
  Receive Date: 20110225
  Receipt Date: 20110221
  Transmission Date: 20110831
  Serious: Yes (Death, Other)
  Sender: FDA-Public Use
  Company Number: US-ELI_LILLY_AND_COMPANY-US201011005495

PATIENT
  Sex: Female
  Weight: 33.56 kg

DRUGS (19)
  1. HYDROXYCHLOROQUINE [Concomitant]
  2. FUROSEMIDE [Concomitant]
  3. ASPIRIN [Concomitant]
  4. VITAMIN B [Concomitant]
     Dosage: 250 MG, UNK
  5. CALCIUM WITH VITAMIN D [Concomitant]
     Dosage: UNK, 2/D
  6. PERCOCET [Concomitant]
  7. LISINOPRIL [Concomitant]
  8. VITAMIN D [Concomitant]
     Dosage: UNK, DAILY (1/D)
  9. OXYGEN [Concomitant]
     Dosage: 2 LITER, UNK
  10. PRILOSEC [Concomitant]
  11. KLOR-CON [Concomitant]
     Dosage: UNK, 2/D
  12. ASCORBIC ACID [Concomitant]
     Dosage: UNK, 2/D
  13. DILTIAZEM [Concomitant]
  14. VIT B12 [Concomitant]
  15. ALPRAZOLAM [Concomitant]
  16. EFFEXOR [Concomitant]
  17. FORTEO [Suspect]
     Indication: OSTEOPOROSIS
     Dosage: 20 UG, DAILY (1/D)
     Dates: start: 20100423
  18. STOOL SOFTENER [Concomitant]
  19. AMLODIPINE [Concomitant]

REACTIONS (2)
  - SMALL CELL LUNG CANCER STAGE UNSPECIFIED [None]
  - DEATH [None]
